FAERS Safety Report 4396107-8 (Version None)
Quarter: 2004Q3

REPORT INFORMATION
  Report Type: 
  Country: None (occurrence: None)
  Receive Date: 20040709
  Receipt Date: 20040623
  Transmission Date: 20050211
  Serious: Yes (Hospitalization, Other)
  Sender: FDA-Public Use
  Company Number: 190158

PATIENT
  Age: 44 Year
  Sex: Female
  Weight: 95.2554 kg

DRUGS (2)
  1. AVONEX [Suspect]
     Indication: MULTIPLE SCLEROSIS
     Dates: start: 19970101, end: 20030101
  2. AVONEX [Suspect]
     Indication: MULTIPLE SCLEROSIS
     Dates: start: 20030101

REACTIONS (4)
  - CEREBROVASCULAR ACCIDENT [None]
  - DYSPNOEA [None]
  - GLAUCOMA [None]
  - PERICARDIAL EFFUSION [None]
